FAERS Safety Report 8955846 (Version 2)
Quarter: 2013Q1

REPORT INFORMATION
  Report Type: Spontaneous
  Country: IT (occurrence: IT)
  Receive Date: 20121210
  Receipt Date: 20130219
  Transmission Date: 20140127
  Serious: Yes (Hospitalization)
  Sender: FDA-Public Use
  Company Number: IT-PFIZER INC-2012305793

PATIENT
  Age: 82 Year
  Sex: Female

DRUGS (1)
  1. BASSADO [Suspect]
     Dosage: 1 DF, DAILY
     Route: 048
     Dates: start: 20120704, end: 20120708

REACTIONS (2)
  - Oedema [Recovering/Resolving]
  - Oral candidiasis [Recovering/Resolving]
